FAERS Safety Report 25971024 (Version 1)
Quarter: 2025Q4

REPORT INFORMATION
  Report Type: Spontaneous
  Country: US (occurrence: US)
  Receive Date: 20251028
  Receipt Date: 20251028
  Transmission Date: 20260118
  Serious: Yes (Other)
  Sender: MERCK SHARP & DOHME LLC
  Company Number: US-009507513-2342297

PATIENT
  Age: 77 Year
  Sex: Female

DRUGS (14)
  1. PEMBROLIZUMAB [Suspect]
     Active Substance: PEMBROLIZUMAB
     Indication: Angiosarcoma
     Dates: end: 20250813
  2. CABOMETYX [Suspect]
     Active Substance: CABOZANTINIB S-MALATE
     Indication: Angiosarcoma
     Dosage: 20 MG
     Dates: end: 20250813
  3. METOPROLOL SUCCINATE [Concomitant]
     Active Substance: METOPROLOL SUCCINATE
  4. DICLOXACILLIN SODIUM [Concomitant]
     Active Substance: DICLOXACILLIN SODIUM
  5. VITAMIN C [Concomitant]
     Active Substance: ASCORBIC ACID
  6. ZINC [Concomitant]
     Active Substance: ZINC
  7. COENZYME Q10 [Concomitant]
     Active Substance: DIETARY SUPPLEMENT\UBIDECARENONE
  8. MAGNESIUM OXIDE [Concomitant]
     Active Substance: MAGNESIUM OXIDE
  9. MINERALS\VITAMINS [Concomitant]
     Active Substance: MINERALS\VITAMINS
  10. TYLENOL [Concomitant]
     Active Substance: ACETAMINOPHEN
  11. RIVASTIGMINE TARTRATE [Concomitant]
     Active Substance: RIVASTIGMINE TARTRATE
  12. MEMANTINE [Concomitant]
     Active Substance: MEMANTINE
  13. ATORVASTATIN CALCIUM [Concomitant]
     Active Substance: ATORVASTATIN CALCIUM
  14. AMIODARONE HYDROCHLORIDE [Concomitant]
     Active Substance: AMIODARONE HYDROCHLORIDE

REACTIONS (2)
  - Malignant neoplasm progression [Recovered/Resolved]
  - Off label use [Unknown]

NARRATIVE: CASE EVENT DATE: 20250801
